FAERS Safety Report 14543936 (Version 1)
Quarter: 2018Q1

REPORT INFORMATION
  Report Type: Report from Study
  Country: US (occurrence: US)
  Receive Date: 20180216
  Receipt Date: 20180216
  Transmission Date: 20180509
  Serious: Yes (Life-Threatening, Hospitalization)
  Sender: FDA-Public Use
  Company Number: US-TEVA-2018-US-858752

PATIENT
  Age: 16 Year
  Sex: Female
  Weight: 69 kg

DRUGS (3)
  1. VINCRISTINE [Suspect]
     Active Substance: VINCRISTINE
     Indication: B PRECURSOR TYPE ACUTE LEUKAEMIA
     Route: 042
     Dates: start: 20170327
  2. POSACONAZOLE [Suspect]
     Active Substance: POSACONAZOLE
     Indication: LUNG INFECTION
     Route: 048
     Dates: start: 20171013
  3. METHOTREXATE. [Suspect]
     Active Substance: METHOTREXATE
     Indication: B PRECURSOR TYPE ACUTE LEUKAEMIA
     Route: 042
     Dates: start: 20170515

REACTIONS (7)
  - Bacteraemia [Unknown]
  - Sinusitis fungal [Not Recovered/Not Resolved]
  - Venoocclusive liver disease [Recovering/Resolving]
  - Lung infection [Recovered/Resolved]
  - Respiratory failure [Recovered/Resolved]
  - Blood bilirubin increased [Recovering/Resolving]
  - Soft tissue infection [Recovered/Resolved]

NARRATIVE: CASE EVENT DATE: 20171202
